FAERS Safety Report 20584345 (Version 1)
Quarter: 2022Q1

REPORT INFORMATION
  Report Type: Spontaneous
  Country: None (occurrence: CA)
  Receive Date: 20220311
  Receipt Date: 20220311
  Transmission Date: 20220424
  Serious: Yes (Hospitalization, Other)
  Sender: FDA-Public Use
  Company Number: CA-B.Braun Medical Inc.-2126690

PATIENT
  Age: 77 Year
  Sex: Female

DRUGS (48)
  1. ACETAMINOPHEN [Suspect]
     Active Substance: ACETAMINOPHEN
  2. ASPIRIN\DIPYRIDAMOLE [Concomitant]
     Active Substance: ASPIRIN\DIPYRIDAMOLE
  3. Cranberry tablet [Concomitant]
  4. Fibre soluble/glycerol/phosphoric acid/potassium sorbate/sodium benzoa [Concomitant]
  5. POTASSIUM SORBATE [Concomitant]
     Active Substance: POTASSIUM SORBATE
  6. ASCORBIC ACID\CRANBERRY [Concomitant]
     Active Substance: ASCORBIC ACID\CRANBERRY
  7. VITAMIN C [Concomitant]
     Active Substance: ASCORBIC ACID
  8. ZINC SULFATE [Concomitant]
     Active Substance: ZINC SULFATE
  9. ACEBUTOLOL HYDROCHLORIDE [Suspect]
     Active Substance: ACEBUTOLOL HYDROCHLORIDE
  10. AGGRENOX [Suspect]
     Active Substance: ASPIRIN\DIPYRIDAMOLE
  11. AMITRIPTYLINE [Suspect]
     Active Substance: AMITRIPTYLINE
  12. AMITRIPTYLINE HYDROCHLORIDE [Suspect]
     Active Substance: AMITRIPTYLINE HYDROCHLORIDE
  13. AMLODIPINE BESYLATE [Suspect]
     Active Substance: AMLODIPINE BESYLATE
  14. AMITRIPTYLINE HYDROCHLORIDE [Suspect]
     Active Substance: AMITRIPTYLINE HYDROCHLORIDE
  15. CARBAMAZEPINE [Suspect]
     Active Substance: CARBAMAZEPINE
  16. DILTIAZEM HYDROCHLORIDE [Suspect]
     Active Substance: DILTIAZEM HYDROCHLORIDE
  17. OXAZEPAM [Suspect]
     Active Substance: OXAZEPAM
  18. ASPIRIN [Suspect]
     Active Substance: ASPIRIN
  19. CAFFEINE [Suspect]
     Active Substance: CAFFEINE
  20. CALCIUM CARBONATE [Suspect]
     Active Substance: CALCIUM CARBONATE
  21. CARBAMAZEPINE [Suspect]
     Active Substance: CARBAMAZEPINE
  22. CYCLOBENZAPRINE [Suspect]
     Active Substance: CYCLOBENZAPRINE
  23. CYCLOBENZAPRINE HYDROCHLORIDE [Suspect]
     Active Substance: CYCLOBENZAPRINE HYDROCHLORIDE
  24. DILTIAZEM [Suspect]
     Active Substance: DILTIAZEM
  25. DILTIAZEM [Suspect]
     Active Substance: DILTIAZEM
  26. DULCOLAX NOS [Suspect]
     Active Substance: BISACODYL OR DOCUSATE SODIUM
  27. FRUCTOSE\GLYCERIN\SODIUM CHLORIDE [Suspect]
     Active Substance: FRUCTOSE\GLYCERIN\SODIUM CHLORIDE
  28. FUROSEMIDE [Suspect]
     Active Substance: FUROSEMIDE
  29. GALANTAMINE [Suspect]
     Active Substance: GALANTAMINE
  30. GALANTAMINE HYDROBROMIDE [Suspect]
     Active Substance: GALANTAMINE HYDROBROMIDE
  31. GLUCOSAMINE [Suspect]
     Active Substance: GLUCOSAMINE
  32. LACTULOSE [Suspect]
     Active Substance: LACTULOSE
  33. LEVOFLOXACIN HEMIHYDRATE [Suspect]
     Active Substance: LEVOFLOXACIN
  34. LEVOTHYROXINE SODIUM [Suspect]
     Active Substance: LEVOTHYROXINE SODIUM
  35. MAGNESIUM HYDROXIDE [Suspect]
     Active Substance: MAGNESIUM HYDROXIDE
  36. MORPHINE SULFATE [Suspect]
     Active Substance: MORPHINE SULFATE
  37. NITROGLYCERIN [Suspect]
     Active Substance: NITROGLYCERIN
  38. OMEPRAZOLE MAGNESIUM [Suspect]
     Active Substance: OMEPRAZOLE MAGNESIUM
  39. OXAZEPAM [Suspect]
     Active Substance: OXAZEPAM
  40. PERSANTINE [Suspect]
     Active Substance: DIPYRIDAMOLE
  41. HERBALS\PLANTAGO OVATA LEAF [Suspect]
     Active Substance: HERBALS\PLANTAGO OVATA LEAF
  42. POLYSORBATE 85 [Suspect]
     Active Substance: POLYSORBATE 85
  43. QUINAPRIL HYDROCHLORIDE [Suspect]
     Active Substance: QUINAPRIL HYDROCHLORIDE
  44. ROSUVASTATIN [Suspect]
     Active Substance: ROSUVASTATIN
  45. ROSUVASTATIN CALCIUM [Suspect]
     Active Substance: ROSUVASTATIN CALCIUM
  46. ALBUTEROL [Suspect]
     Active Substance: ALBUTEROL
  47. SPIRIVA [Suspect]
     Active Substance: TIOTROPIUM BROMIDE MONOHYDRATE
  48. TIOTROPIUM BROMIDE [Suspect]
     Active Substance: TIOTROPIUM BROMIDE

REACTIONS (14)
  - Balance disorder [Recovered/Resolved]
  - Blood calcium decreased [None]
  - Cognitive disorder [None]
  - Constipation [None]
  - Creatinine renal clearance decreased [None]
  - Depressed level of consciousness [None]
  - Fall [None]
  - Hypotension [None]
  - Mobility decreased [None]
  - Orthostatic hypotension [None]
  - Pain [None]
  - Sedation [None]
  - Sedation complication [None]
  - Toxicity to various agents [None]
